FAERS Safety Report 23072513 (Version 1)
Quarter: 2023Q4

REPORT INFORMATION
  Report Type: Spontaneous
  Country: US (occurrence: US)
  Receive Date: 20231017
  Receipt Date: 20231017
  Transmission Date: 20240109
  Serious: Yes (Hospitalization)
  Sender: FDA-Public Use
  Company Number: US-CADILA HEALTHCARE LIMITED-US-ZYDUS-098943

PATIENT

DRUGS (1)
  1. VERAPAMIL [Suspect]
     Active Substance: VERAPAMIL HYDROCHLORIDE
     Indication: Product used for unknown indication
     Dosage: 4080 MILLIGRAM
     Route: 065

REACTIONS (5)
  - Hyperglycaemia [Unknown]
  - Hypotension [Unknown]
  - Respiratory rate increased [Unknown]
  - Toxicity to various agents [Unknown]
  - Overdose [Unknown]
